FAERS Safety Report 5915612-3 (Version None)
Quarter: 2008Q4

REPORT INFORMATION
  Report Type: 
  Country: None (occurrence: None)
  Receive Date: 20081010
  Receipt Date: 20080929
  Transmission Date: 20090506
  Serious: Yes (Hospitalization, Other)
  Sender: FDA-Public Use
  Company Number: CA-PFIZER INC-2008082651

PATIENT
  Age: 53 Year
  Sex: Female

DRUGS (5)
  1. LYRICA [Suspect]
     Route: 048
     Dates: start: 20080822
  2. CALCITE D [Concomitant]
  3. CELEXA [Concomitant]
  4. BROMAZEPAM [Concomitant]
  5. ASAPHEN [Concomitant]

REACTIONS (3)
  - HYPOTENSION [None]
  - MYOCARDIAL INFARCTION [None]
  - TACHYCARDIA [None]
